FAERS Safety Report 10182836 (Version 1)
Quarter: 2014Q2

REPORT INFORMATION
  Report Type: Spontaneous
  Country: US (occurrence: US)
  Receive Date: 20140520
  Receipt Date: 20140520
  Transmission Date: 20141212
  Serious: No
  Sender: FDA-Public Use
  Company Number: US-PFIZER INC-2014133793

PATIENT
  Sex: Female

DRUGS (1)
  1. RAPAMUNE [Suspect]
     Indication: POLYMYALGIA RHEUMATICA
     Dosage: UNK

REACTIONS (3)
  - Nervous system disorder [Unknown]
  - Memory impairment [Unknown]
  - Off label use [Unknown]
